FAERS Safety Report 13394587 (Version 2)
Quarter: 2017Q3

REPORT INFORMATION
  Report Type: Spontaneous
  Country: US (occurrence: US)
  Receive Date: 20170403
  Receipt Date: 20170713
  Transmission Date: 20171127
  Serious: No
  Sender: FDA-Public Use
  Company Number: US-CELGENEUS-USA-2017038271

PATIENT
  Sex: Female

DRUGS (1)
  1. OTEZLA [Suspect]
     Active Substance: APREMILAST
     Indication: PSORIASIS
     Dosage: 10 MG IN AM AND 20 MG IN PM.
     Route: 048
     Dates: start: 201701

REACTIONS (3)
  - Abdominal discomfort [Recovered/Resolved with Sequelae]
  - Diarrhoea [Recovered/Resolved with Sequelae]
  - Weight decreased [Recovered/Resolved with Sequelae]

NARRATIVE: CASE EVENT DATE: 201701
